FAERS Safety Report 7422848-1 (Version None)
Quarter: 2011Q2

REPORT INFORMATION
  Report Type: 
  Country: None (occurrence: None)
  Receive Date: 20110419
  Receipt Date: 20110405
  Transmission Date: 20111010
  Serious: Yes (Hospitalization)
  Sender: FDA-Public Use
  Company Number: DE-JNJFOC-20101105337

PATIENT
  Sex: Male
  Weight: 85 kg

DRUGS (3)
  1. TRAMADOL [Concomitant]
     Route: 065
  2. ADALAT [Concomitant]
     Indication: HYPERTENSION
  3. PALEXIA RETARD [Suspect]
     Indication: BACK PAIN
     Route: 048

REACTIONS (3)
  - HYPERSENSITIVITY [None]
  - NAUSEA [None]
  - ABDOMINAL PAIN UPPER [None]
